FAERS Safety Report 9479615 (Version 1)
Quarter: 2013Q3

REPORT INFORMATION
  Report Type: Report from Study
  Country: US (occurrence: US)
  Receive Date: 20130827
  Receipt Date: 20130827
  Transmission Date: 20140515
  Serious: No
  Sender: FDA-Public Use
  Company Number: PHEH2013US018037

PATIENT
  Age: 88 Year
  Sex: Female

DRUGS (12)
  1. TASIGNA [Suspect]
     Dosage: 600 MG, DAILY
     Route: 048
     Dates: start: 20130116
  2. CELEBREX [Concomitant]
  3. COREG [Concomitant]
  4. AMPLIFIED CALCIUM [Concomitant]
  5. OXYBUTYNIN [Concomitant]
  6. SOMA [Concomitant]
  7. ATORVASTATIN [Concomitant]
  8. MULTI-VIT [Concomitant]
  9. LEVOTHYROXINE [Concomitant]
  10. LASIX [Concomitant]
  11. ALDACTONE [Concomitant]
  12. NITROGLYCERINE [Concomitant]

REACTIONS (2)
  - Constipation [Unknown]
  - Dizziness [Unknown]
